FAERS Safety Report 24595208 (Version 3)
Quarter: 2024Q4

REPORT INFORMATION
  Report Type: Report from Study
  Country: US (occurrence: US)
  Receive Date: 20241108
  Receipt Date: 20241113
  Transmission Date: 20250114
  Serious: Yes (Hospitalization, Other)
  Sender: JOHNSON AND JOHNSON
  Company Number: US-JNJFOC-20241105887

PATIENT
  Age: 65 Year
  Sex: Male

DRUGS (2)
  1. SPRAVATO [Suspect]
     Active Substance: ESKETAMINE
     Indication: Depression
     Dosage: 56 MG, TOTAL OF 1 DOSE
     Dates: start: 20241029, end: 20241029
  2. SPRAVATO [Suspect]
     Active Substance: ESKETAMINE
     Dates: start: 20241031, end: 20241031

REACTIONS (2)
  - Paranoia [Unknown]
  - Dissociation [Unknown]

NARRATIVE: CASE EVENT DATE: 20241031
